FAERS Safety Report 6459252-9 (Version None)
Quarter: 2009Q4

REPORT INFORMATION
  Report Type: 
  Country: None (occurrence: None)
  Receive Date: 20091127
  Receipt Date: 20090805
  Transmission Date: 20100525
  Serious: No
  Sender: FDA-Public Use
  Company Number: US-AMGEN-KDL358863

PATIENT
  Sex: Female

DRUGS (4)
  1. ENBREL [Suspect]
     Indication: RHEUMATOID ARTHRITIS
     Route: 058
     Dates: start: 20071101, end: 20090802
  2. ARAVA [Suspect]
     Dates: start: 20090601, end: 20090701
  3. PLAQUENIL [Concomitant]
  4. PREDNISONE TAB [Concomitant]

REACTIONS (3)
  - DIARRHOEA [None]
  - RASH ERYTHEMATOUS [None]
  - RASH MACULAR [None]
